FAERS Safety Report 20443361 (Version 1)
Quarter: 2022Q1

REPORT INFORMATION
  Report Type: Report from Study
  Country: US (occurrence: US)
  Receive Date: 20220208
  Receipt Date: 20220208
  Transmission Date: 20220423
  Serious: Yes (Other)
  Sender: FDA-Public Use
  Company Number: US-JAZZ-2022-US-001864

PATIENT
  Sex: Female

DRUGS (3)
  1. XYWAV [Suspect]
     Active Substance: CALCIUM OXYBATE\MAGNESIUM OXYBATE\POTASSIUM OXYBATE\SODIUM OXYBATE
     Indication: Hypersomnia
     Dosage: 2.25 GRAM, BID
     Route: 048
     Dates: start: 202112, end: 202112
  2. XYWAV [Suspect]
     Active Substance: CALCIUM OXYBATE\MAGNESIUM OXYBATE\POTASSIUM OXYBATE\SODIUM OXYBATE
     Dosage: 3 GRAM, BID
     Route: 048
     Dates: start: 202112, end: 202112
  3. ARMODAFINIL [Suspect]
     Active Substance: ARMODAFINIL
     Indication: Product used for unknown indication

REACTIONS (10)
  - Carpal tunnel syndrome [Unknown]
  - COVID-19 [Unknown]
  - Blood iron decreased [Unknown]
  - Swelling [Unknown]
  - Somnolence [Unknown]
  - Dizziness [Unknown]
  - Confusional state [Unknown]
  - Pre-existing condition improved [Unknown]
  - Therapeutic response unexpected [Unknown]
  - Product dose omission issue [Unknown]
